FAERS Safety Report 9500628 (Version 1)
Quarter: 2013Q1

REPORT INFORMATION
  Report Type: Spontaneous
  Country: US (occurrence: None)
  Receive Date: 20130107
  Receipt Date: 20130107
  Transmission Date: 20140127
  Serious: No
  Sender: FDA-Public Use
  Company Number: PHHY2012US101904

PATIENT
  Age: 45 Year
  Sex: Female

DRUGS (8)
  1. GILENYA [Suspect]
     Indication: MULTIPLE SCLEROSIS
     Route: 048
     Dates: start: 20111015
  2. WELLBUTRIN (BUPROPION HYDROCHLORIDE) [Concomitant]
  3. IBUPROFEN (IBUPROFEN) [Concomitant]
  4. LOVAZA (OMEGA-3 ACID ETHYLESTER) [Concomitant]
  5. HYDROXOCOBALAMIN HYDROCHLORIDE (HYDROXOCOBALAMIN HYDROCHLORIDE) [Concomitant]
  6. ADDERALL (AMFETAMINE ASPARTATE, AMFETAMINE SULFATE, DEXAMFETAMINE SACCHARATE, DEXAMFETAMINE SULFATE) [Concomitant]
  7. CALCIUM CITRATE W/ VITAMIN D NOS (CALCIUM CITRATE, VITAMIN D NOS) [Concomitant]
  8. FISH OIL (FISH OIL) [Concomitant]

REACTIONS (2)
  - Hot flush [None]
  - Feeling of body temperature change [None]
